FAERS Safety Report 20965427 (Version 1)
Quarter: 2022Q2

REPORT INFORMATION
  Report Type: Spontaneous
  Country: US (occurrence: US)
  Receive Date: 20220616
  Receipt Date: 20220616
  Transmission Date: 20220720
  Serious: Yes (Other)
  Sender: FDA-Public Use
  Company Number: US-drreddys-LIT/USA/22/0151208

PATIENT
  Sex: Female

DRUGS (10)
  1. VIGABATRIN [Suspect]
     Active Substance: VIGABATRIN
     Indication: Hemimegalencephaly
  2. LEVETIRACETAM [Suspect]
     Active Substance: LEVETIRACETAM
     Indication: Hemimegalencephaly
  3. FOSPHENYTOIN SODIUM [Suspect]
     Active Substance: FOSPHENYTOIN SODIUM
     Indication: Hemimegalencephaly
  4. LACOSAMIDE [Suspect]
     Active Substance: LACOSAMIDE
     Indication: Hemimegalencephaly
  5. MIDAZOLAM [Suspect]
     Active Substance: MIDAZOLAM
     Indication: Hemimegalencephaly
  6. OXCARBAZEPINE [Suspect]
     Active Substance: OXCARBAZEPINE
     Indication: Hemimegalencephaly
  7. PHENOBARBITAL [Suspect]
     Active Substance: PHENOBARBITAL
     Indication: Hemimegalencephaly
  8. TOPIRAMATE [Suspect]
     Active Substance: TOPIRAMATE
     Indication: Hemimegalencephaly
  9. ZONISAMIDE [Suspect]
     Active Substance: ZONISAMIDE
     Indication: Hemimegalencephaly
  10. KETAMINE [Suspect]
     Active Substance: KETAMINE
     Indication: Product used for unknown indication
     Dosage: 3.5 MG/KG/HOUR

REACTIONS (3)
  - Neurotoxicity [Unknown]
  - Toxicity to various agents [Unknown]
  - Drug ineffective [Unknown]
